FAERS Safety Report 6083416-X (Version None)
Quarter: 2009Q1

REPORT INFORMATION
  Report Type: 
  Country: None (occurrence: None)
  Receive Date: 20090213
  Receipt Date: 20090213
  Transmission Date: 20090719
  Serious: Yes (Hospitalization, Disabling)
  Sender: FDA-Public Use
  Company Number: None

PATIENT
  Age: 50 Year
  Sex: Male
  Weight: 101.2 kg

DRUGS (2)
  1. TRAZODONE HCL [Suspect]
     Indication: DEPRESSION
     Dosage: 100-200 MG HS PO
     Route: 048
     Dates: start: 20081219, end: 20081222
  2. TRAZODONE HCL [Suspect]
     Indication: INSOMNIA
     Dosage: 100-200 MG HS PO
     Route: 048
     Dates: start: 20081219, end: 20081222

REACTIONS (3)
  - ERECTILE DYSFUNCTION [None]
  - PENIS INJURY [None]
  - PRIAPISM [None]
